FAERS Safety Report 8251851-7 (Version None)
Quarter: 2012Q2

REPORT INFORMATION
  Report Type: 
  Country: None (occurrence: None)
  Receive Date: 20120402
  Receipt Date: 20120322
  Transmission Date: 20120825
  Serious: Yes (Hospitalization)
  Sender: FDA-Public Use
  Company Number: DE-ELI_LILLY_AND_COMPANY-DE201202003263

PATIENT
  Age: 73 Year
  Sex: Male
  Weight: 133 kg

DRUGS (6)
  1. METOPROLOL TARTRATE [Concomitant]
  2. BYDUREON [Suspect]
     Indication: TYPE 2 DIABETES MELLITUS
     Dosage: 2 MG, WEEKLY (1/W)
     Route: 058
     Dates: start: 20120124
  3. SIMVABETA [Concomitant]
     Dosage: 40 MG, UNK
  4. ALLOPURINOL [Concomitant]
     Dosage: 300 MG, UNK
  5. REPAGLINIDE [Concomitant]
     Dosage: 2 MG, TID
  6. BYETTA [Concomitant]
     Dosage: 10 UG, UNK

REACTIONS (2)
  - NASOPHARYNGITIS [None]
  - BLOOD GLUCOSE INCREASED [None]
